FAERS Safety Report 24872200 (Version 3)
Quarter: 2025Q1

REPORT INFORMATION
  Report Type: Spontaneous
  Country: US (occurrence: US)
  Receive Date: 20250122
  Receipt Date: 20250326
  Transmission Date: 20250409
  Serious: No
  Sender: BIOGEN
  Company Number: US-BIOGEN-2022BI01091815

PATIENT
  Sex: Male

DRUGS (19)
  1. VUMERITY [Suspect]
     Active Substance: DIROXIMEL FUMARATE
     Indication: Multiple sclerosis
     Dosage: STARTING DOSE
     Route: 050
     Dates: start: 20210721
  2. VUMERITY [Suspect]
     Active Substance: DIROXIMEL FUMARATE
     Dosage: MAINTENANCE DOSE?TAKE 2 CAPSULES (462MG) BY MOUTH TWICE DAILY
     Route: 050
  3. VUMERITY [Suspect]
     Active Substance: DIROXIMEL FUMARATE
     Route: 050
  4. FENOFIBRATE [Concomitant]
     Active Substance: FENOFIBRATE
     Route: 050
  5. TAMSULOSIN HYDROCHLORIDE [Concomitant]
     Active Substance: TAMSULOSIN HYDROCHLORIDE
     Route: 050
  6. ROSUVASTATIN CALCIUM [Concomitant]
     Active Substance: ROSUVASTATIN CALCIUM
     Route: 050
  7. LISINOPRIL [Concomitant]
     Active Substance: LISINOPRIL
     Route: 050
  8. CHONDROITIN SULFATE (BOVINE)\GLUCOSAMINE HYDROCHLORIDE [Concomitant]
     Active Substance: CHONDROITIN SULFATE (BOVINE)\GLUCOSAMINE HYDROCHLORIDE
     Route: 050
  9. VITAMIN D [Concomitant]
     Active Substance: VITAMIN D NOS
     Route: 050
  10. VITAMIN B12 [Concomitant]
     Active Substance: CYANOCOBALAMIN
     Route: 050
  11. IPRATROPIUM [Concomitant]
     Active Substance: IPRATROPIUM
     Route: 050
  12. NAPROXEN [Concomitant]
     Active Substance: NAPROXEN
     Route: 050
  13. CIPROFLOXACIN HYDROCHLORIDE [Concomitant]
     Active Substance: CIPROFLOXACIN HYDROCHLORIDE
     Route: 050
  14. ACETAMINOPHEN\HYDROCODONE [Concomitant]
     Active Substance: ACETAMINOPHEN\HYDROCODONE
     Route: 050
  15. DONEPEZIL HYDROCHLORIDE [Concomitant]
     Active Substance: DONEPEZIL HYDROCHLORIDE
     Route: 050
  16. MEMANTINE [Concomitant]
     Active Substance: MEMANTINE
     Route: 050
  17. VITAMIN E [Concomitant]
     Active Substance: .ALPHA.-TOCOPHEROL
     Route: 050
  18. GABAPENTIN [Concomitant]
     Active Substance: GABAPENTIN
     Route: 050
  19. TRICOR [Concomitant]
     Active Substance: FENOFIBRATE
     Route: 050

REACTIONS (10)
  - Gait disturbance [Not Recovered/Not Resolved]
  - Dementia [Unknown]
  - Asthenia [Unknown]
  - Multiple sclerosis [Unknown]
  - Anal incontinence [Unknown]
  - Fall [Recovered/Resolved]
  - Memory impairment [Recovered/Resolved]
  - Weight increased [Recovered/Resolved]
  - Diarrhoea [Unknown]
  - Rhinorrhoea [Recovered/Resolved]
